FAERS Safety Report 8556376-7 (Version None)
Quarter: 2012Q3

REPORT INFORMATION
  Report Type: 
  Country: None (occurrence: None)
  Receive Date: 20120801
  Receipt Date: 20120726
  Transmission Date: 20120928
  Serious: Yes (Congenital Anomaly)
  Sender: FDA-Public Use
  Company Number: PHHY2012CR064811

PATIENT
  Sex: Female

DRUGS (2)
  1. FORADIL [Suspect]
     Dosage: MATERNAL DOSE:
     Route: 064
  2. BUDESONIDE [Suspect]
     Dosage: MATERNAL DOSE:
     Route: 064

REACTIONS (4)
  - FOETAL GROWTH RESTRICTION [None]
  - PLACENTAL DISORDER [None]
  - FOETAL EXPOSURE TIMING UNSPECIFIED [None]
  - OLIGOHYDRAMNIOS [None]
